FAERS Safety Report 19478752 (Version 1)
Quarter: 2021Q2

REPORT INFORMATION
  Report Type: Report from Study
  Country: CO (occurrence: CO)
  Receive Date: 20210630
  Receipt Date: 20210630
  Transmission Date: 20210717
  Serious: Yes (Hospitalization)
  Sender: FDA-Public Use
  Company Number: CO-VER-202100008

PATIENT
  Age: 9 Year
  Sex: Female

DRUGS (1)
  1. TRIPTORELIN PAMOATE [Suspect]
     Active Substance: TRIPTORELIN PAMOATE
     Indication: PRECOCIOUS PUBERTY
     Route: 030
     Dates: start: 20210311

REACTIONS (5)
  - Administration site pain [Not Recovered/Not Resolved]
  - Gait inability [Not Recovered/Not Resolved]
  - Administration site haematoma [Recovered/Resolved]
  - Administration site inflammation [Not Recovered/Not Resolved]
  - Application site hypoaesthesia [Recovered/Resolved]

NARRATIVE: CASE EVENT DATE: 20210528
